FAERS Safety Report 16214589 (Version 9)
Quarter: 2025Q1

REPORT INFORMATION
  Report Type: Report from Study
  Country: US (occurrence: US)
  Receive Date: 20190418
  Receipt Date: 20250203
  Transmission Date: 20250409
  Serious: Yes (Hospitalization, Other)
  Sender: TAKEDA
  Company Number: US-SHIRE-US201912618

PATIENT
  Age: 15 Year
  Sex: Male

DRUGS (5)
  1. IDURSULFASE [Suspect]
     Active Substance: IDURSULFASE
     Indication: Mucopolysaccharidosis II
  2. IDURSULFASE [Suspect]
     Active Substance: IDURSULFASE
     Dosage: UNK UNK, 1/WEEK
     Dates: start: 20100405
  3. IDURSULFASE [Suspect]
     Active Substance: IDURSULFASE
  4. IDURSULFASE [Suspect]
     Active Substance: IDURSULFASE
  5. IDURSULFASE [Suspect]
     Active Substance: IDURSULFASE
     Dosage: UNK UNK, 1/WEEK

REACTIONS (9)
  - Hydrocephalus [Not Recovered/Not Resolved]
  - Gait inability [Not Recovered/Not Resolved]
  - Speech disorder [Not Recovered/Not Resolved]
  - Respiratory syncytial virus infection [Recovered/Resolved]
  - Nasopharyngitis [Recovering/Resolving]
  - Insurance issue [Recovering/Resolving]
  - Obstruction [Unknown]
  - Product dose omission issue [Not Recovered/Not Resolved]
  - Product use issue [Unknown]

NARRATIVE: CASE EVENT DATE: 20221101
